FAERS Safety Report 14918470 (Version 1)
Quarter: 2018Q2

REPORT INFORMATION
  Report Type: Spontaneous
  Country: US (occurrence: US)
  Receive Date: 20180521
  Receipt Date: 20180521
  Transmission Date: 20180711
  Serious: No
  Sender: FDA-Public Use
  Company Number: US-009507513-1805USA002076

PATIENT
  Age: 13 Year
  Sex: Female

DRUGS (5)
  1. PREDNISONE. [Suspect]
     Active Substance: PREDNISONE
     Route: 048
  2. SINGULAIR [Suspect]
     Active Substance: MONTELUKAST SODIUM
     Route: 048
  3. TYLENOL COLD AND SINUS [Suspect]
     Active Substance: ACETAMINOPHEN\PSEUDOEPHEDRINE
  4. CELEXA [Concomitant]
     Active Substance: CITALOPRAM HYDROBROMIDE
     Dosage: 40 MG, QD
  5. ASMANEX [Suspect]
     Active Substance: MOMETASONE FUROATE
     Indication: ASTHMA
     Dosage: 1 DF, QD
     Route: 055
     Dates: start: 2017

REACTIONS (6)
  - Abnormal behaviour [Recovered/Resolved]
  - Gastroenteritis [Recovered/Resolved]
  - Agitation [Recovered/Resolved]
  - Circumstance or information capable of leading to medication error [Unknown]
  - Product quality issue [Recovered/Resolved]
  - Irritability [Recovered/Resolved]

NARRATIVE: CASE EVENT DATE: 20180412
